FAERS Safety Report 6237823-2 (Version None)
Quarter: 2009Q2

REPORT INFORMATION
  Report Type: 
  Country: None (occurrence: None)
  Receive Date: 20090617
  Receipt Date: 20090608
  Transmission Date: 20091009
  Serious: Yes (Other)
  Sender: FDA-Public Use
  Company Number: CHPA2009US13355

PATIENT
  Age: 73 Year
  Sex: Male
  Weight: 72.6 kg

DRUGS (2)
  1. GAS-X EXTRA STRENGTH SOFTGELS (NCH) (SIMETHICONE) SOFT GELATIN CAPSULE [Suspect]
     Indication: FLATULENCE
     Dosage: 250 MG, SIX TIMES A DAY, ORAL
     Route: 048
     Dates: start: 20090401
  2. GLYCOLAX (MACROGOL) [Concomitant]

REACTIONS (2)
  - KIDNEY INFECTION [None]
  - OVERDOSE [None]
